FAERS Safety Report 7563823-6 (Version None)
Quarter: 2011Q2

REPORT INFORMATION
  Report Type: 
  Country: None (occurrence: None)
  Receive Date: 20110621
  Receipt Date: 20110621
  Transmission Date: 20111010
  Serious: Yes (Other)
  Sender: FDA-Public Use
  Company Number: None

PATIENT
  Sex: Female

DRUGS (7)
  1. TUSSIONEX [Concomitant]
  2. AUGMENTIN '125' [Concomitant]
  3. COMBIVENT [Concomitant]
  4. VALCYCLOVIR 500 MG NORTHSTAR [Suspect]
     Indication: PRODUCT USED FOR UNKNOWN INDICATION
     Dosage: 500 MG 2 TABLETS DAILY ORAL
     Route: 048
     Dates: start: 20100725, end: 20110530
  5. PANTOPRAZOLE [Concomitant]
  6. FLUCONAZOLE [Concomitant]
  7. PREDNISONE [Concomitant]

REACTIONS (1)
  - DYSMENORRHOEA [None]
